FAERS Safety Report 18968862 (Version 1)
Quarter: 2021Q1

REPORT INFORMATION
  Report Type: Other
  Country: DE (occurrence: DE)
  Receive Date: 20210304
  Receipt Date: 20210304
  Transmission Date: 20210420
  Serious: Yes (Other)
  Sender: FDA-Public Use
  Company Number: DE-ROCHE-2728726

PATIENT
  Age: 69 Year
  Sex: Female
  Weight: 58 kg

DRUGS (5)
  1. OCRELIZUMAB. [Suspect]
     Active Substance: OCRELIZUMAB
     Indication: RELAPSING MULTIPLE SCLEROSIS
     Route: 042
     Dates: start: 20201105
  2. DIMETHYL FUMARATE [Concomitant]
     Active Substance: DIMETHYL FUMARATE
  3. FAMPYRA [Concomitant]
     Active Substance: DALFAMPRIDINE
     Route: 048
     Dates: start: 20121029
  4. BACLOFEN. [Concomitant]
     Active Substance: BACLOFEN
     Indication: MUSCLE SPASTICITY
     Route: 048
     Dates: start: 20150916
  5. TERIFLUNOMIDE. [Concomitant]
     Active Substance: TERIFLUNOMIDE

REACTIONS (2)
  - Pyrexia [Recovered/Resolved]
  - Device related infection [Recovered/Resolved]

NARRATIVE: CASE EVENT DATE: 20201109
